FAERS Safety Report 20500638 (Version 1)
Quarter: 2022Q1

REPORT INFORMATION
  Report Type: Spontaneous
  Country: US (occurrence: US)
  Receive Date: 20220222
  Receipt Date: 20220222
  Transmission Date: 20220423
  Serious: Yes (Other)
  Sender: FDA-Public Use
  Company Number: US-SA-SAC20220217000303

PATIENT
  Age: 44 Year
  Sex: Male

DRUGS (1)
  1. AUBAGIO [Suspect]
     Active Substance: TERIFLUNOMIDE
     Indication: Multiple sclerosis
     Dosage: 14 MG, QD
     Route: 048
     Dates: start: 202111, end: 20220207

REACTIONS (6)
  - Neuropathy peripheral [Unknown]
  - Paraesthesia [Unknown]
  - Diarrhoea [Unknown]
  - Headache [Unknown]
  - Condition aggravated [Unknown]
  - Blood pressure increased [Unknown]
